FAERS Safety Report 21673320 (Version 1)
Quarter: 2022Q4

REPORT INFORMATION
  Report Type: Spontaneous
  Country: CA (occurrence: CA)
  Receive Date: 20221202
  Receipt Date: 20221202
  Transmission Date: 20230113
  Serious: Yes (Other)
  Sender: FDA-Public Use
  Company Number: CA-ORGANON-O2211CAN002587

PATIENT
  Age: 38 Year
  Sex: Female

DRUGS (11)
  1. SINGULAIR [Suspect]
     Active Substance: MONTELUKAST SODIUM
     Indication: Asthma
     Dosage: 100 MICROGRAM, 1 EVERY 1 DAYS; DOSAGE FORM: NOT SPECIFIED
     Route: 065
  2. ADVAIR HFA [Suspect]
     Active Substance: FLUTICASONE PROPIONATE\SALMETEROL XINAFOATE
     Indication: Product used for unknown indication
     Dosage: 2 DOSAGE FORM, BID (2 EVERY 1 DAYS); DOSAGE FORM: NOT SPECIFIED
     Route: 065
  3. ADVAIR HFA [Suspect]
     Active Substance: FLUTICASONE PROPIONATE\SALMETEROL XINAFOATE
     Dosage: 4 DOSAGE FORM, BID (2 EVERY 1 DAYS); DOSAGE FORM: NOT SPECIFIED
     Route: 065
  4. ALVESCO [Suspect]
     Active Substance: CICLESONIDE
     Indication: Product used for unknown indication
     Dosage: 2 DOSAGE FORM, QD (1 EVERY 1 DAYS); DOSAGE FORM: AEROSOL METERED DOSE
  5. ALVESCO [Suspect]
     Active Substance: CICLESONIDE
     Dosage: 1 DOSAGE FORM, BID (2 EVERY 1 DAYS); DOSAGE FORM: AEROSOL METERED DOSE
  6. ATROVENT [Suspect]
     Active Substance: IPRATROPIUM BROMIDE
     Indication: Asthma
     Dosage: 20 MICROGRAM, QD (1 EVERY 1 DAYS); DOSAGE FORM: NOT SPECIFIED
  7. BREO ELLIPTA [Suspect]
     Active Substance: FLUTICASONE FUROATE\VILANTEROL TRIFENATATE
     Indication: Asthma
     Dosage: DOSAGE FORM: INHALATION
  8. NUCALA [Suspect]
     Active Substance: MEPOLIZUMAB
     Indication: Product used for unknown indication
     Dosage: 100 MILLIGRAM; ROUTE: INTRAVENOUS (NOT OTHERWISE SPECIFIED)
     Route: 042
  9. NUCALA [Suspect]
     Active Substance: MEPOLIZUMAB
     Indication: Asthma
  10. ALBUTEROL [Suspect]
     Active Substance: ALBUTEROL
     Indication: Asthma
     Dosage: 100 MICROGRAM, QD (1 EVERY 1 DAYS); DOSAGE FORM: NOT SPECIFIED
     Route: 065
  11. UMECLIDINIUM BROMIDE [Suspect]
     Active Substance: UMECLIDINIUM BROMIDE
     Indication: Asthma
     Dosage: 100 MICROGRAM, QD (1 EVERY 1 DAYS);
     Route: 065

REACTIONS (13)
  - Asthma [Unknown]
  - Drug ineffective [Unknown]
  - Dyspnoea [Unknown]
  - Full blood count abnormal [Unknown]
  - Infection [Unknown]
  - Loss of personal independence in daily activities [Unknown]
  - Obstructive airways disorder [Unknown]
  - Productive cough [Unknown]
  - Sleep disorder due to a general medical condition [Unknown]
  - Sputum discoloured [Unknown]
  - Syncope [Unknown]
  - Therapeutic product effect incomplete [Unknown]
  - Wheezing [Unknown]
